FAERS Safety Report 4689173-3 (Version None)
Quarter: 2005Q2

REPORT INFORMATION
  Report Type: 
  Country: None (occurrence: None)
  Receive Date: 20050613
  Receipt Date: 20041213
  Transmission Date: 20051028
  Serious: Yes (Life-Threatening)
  Sender: FDA-Public Use
  Company Number: 2004AP06271

PATIENT
  Age: 86 Year
  Sex: Male
  Weight: 42 kg

DRUGS (11)
  1. MEROPEN [Suspect]
     Indication: PNEUMONIA
     Route: 041
     Dates: start: 20041015, end: 20041019
  2. MEROPEN [Concomitant]
     Route: 041
     Dates: start: 20040729, end: 20040804
  3. CALTAN [Concomitant]
     Indication: DIALYSIS
     Route: 048
     Dates: start: 20030901
  4. LORAMET [Concomitant]
     Indication: INSOMNIA
     Route: 048
     Dates: start: 20040801
  5. VITAMEDIN [Concomitant]
     Indication: VITAMIN SUPPLEMENTATION
     Route: 048
     Dates: start: 20040801
  6. GASMOTIN [Concomitant]
     Indication: VOMITING
     Route: 048
     Dates: start: 20040818
  7. ROCEPHIN [Concomitant]
     Indication: PYREXIA
     Route: 013
     Dates: start: 20041009, end: 20041014
  8. FORSENID [Concomitant]
     Indication: CONSTIPATION
     Route: 048
  9. BAYASPIRIN [Concomitant]
     Indication: THROMBOSIS PROPHYLAXIS
     Route: 048
  10. VOLTAREN [Concomitant]
     Indication: BACK PAIN
     Route: 062
  11. DEPAS [Concomitant]
     Indication: INSOMNIA
     Route: 048

REACTIONS (9)
  - CEREBRAL HAEMORRHAGE [None]
  - DEPRESSED LEVEL OF CONSCIOUSNESS [None]
  - DISSEMINATED INTRAVASCULAR COAGULATION [None]
  - GENERAL PHYSICAL HEALTH DETERIORATION [None]
  - LIVER DISORDER [None]
  - MELAENA [None]
  - PYREXIA [None]
  - SHUNT MALFUNCTION [None]
  - VOMITING [None]
